FAERS Safety Report 9181115 (Version 2)
Quarter: 2013Q1

REPORT INFORMATION
  Report Type: Spontaneous
  Country: US (occurrence: US)
  Receive Date: 20130322
  Receipt Date: 20130322
  Transmission Date: 20140127
  Serious: No
  Sender: FDA-Public Use
  Company Number: US-MYLANLABS-2012S1006389

PATIENT
  Age: 42 Year
  Sex: Female

DRUGS (5)
  1. EMSAM [Suspect]
     Indication: BIPOLAR I DISORDER
     Route: 062
     Dates: start: 20111007, end: 20120322
  2. LEVOTHYROXINE [Concomitant]
  3. ESTRADIOL [Concomitant]
  4. SEROQUEL [Concomitant]
  5. LAMICTAL [Concomitant]

REACTIONS (4)
  - Application site pain [Recovered/Resolved]
  - Application site pruritus [Recovered/Resolved]
  - Application site erythema [Not Recovered/Not Resolved]
  - Application site rash [Recovered/Resolved]
